FAERS Safety Report 24571130 (Version 4)
Quarter: 2025Q1

REPORT INFORMATION
  Report Type: Spontaneous
  Country: US (occurrence: US)
  Receive Date: 20241101
  Receipt Date: 20250303
  Transmission Date: 20250409
  Serious: Yes (Death, Other)
  Sender: CHIESI
  Company Number: US-CHIESI-2024CHF06975

PATIENT
  Sex: Female

DRUGS (5)
  1. BETHKIS [Suspect]
     Active Substance: TOBRAMYCIN
     Indication: Feeding disorder
     Dosage: 1 DOSAGE FORM, BID
     Dates: start: 20240509, end: 2024
  2. BETHKIS [Suspect]
     Active Substance: TOBRAMYCIN
     Indication: Lung disorder
  3. BETHKIS [Suspect]
     Active Substance: TOBRAMYCIN
     Indication: Off label use
  4. EPIDIOLEX [Concomitant]
     Active Substance: CANNABIDIOL
     Indication: Product used for unknown indication
     Dates: start: 20190813, end: 20221202
  5. FLUCONAZOLE [Concomitant]
     Active Substance: FLUCONAZOLE
     Indication: Product used for unknown indication
     Dates: start: 20130716, end: 20240819

REACTIONS (7)
  - Hypoxia [Fatal]
  - Aspiration [Fatal]
  - Cardiac arrest [Fatal]
  - Loss of personal independence in daily activities [Unknown]
  - Disturbance in social behaviour [Unknown]
  - Off label use [Not Recovered/Not Resolved]
  - Off label use [Not Recovered/Not Resolved]

NARRATIVE: CASE EVENT DATE: 20240101
